FAERS Safety Report 21047090 (Version 2)
Quarter: 2022Q3

REPORT INFORMATION
  Report Type: Report from Study
  Country: CO (occurrence: CO)
  Receive Date: 20220706
  Receipt Date: 20220727
  Transmission Date: 20221026
  Serious: Yes (Hospitalization, Other)
  Sender: FDA-Public Use
  Company Number: CO-NOVARTISPH-NVSC2021CO060997

PATIENT
  Age: 50 Year
  Sex: Female
  Weight: 52 kg

DRUGS (5)
  1. AFINITOR [Suspect]
     Active Substance: EVEROLIMUS
     Indication: Breast cancer
     Dosage: 10 MG, QD
     Route: 048
     Dates: start: 20210131, end: 202103
  2. AFINITOR [Suspect]
     Active Substance: EVEROLIMUS
     Dosage: 5 MG, QD (HALF TABLET OF 10 MG)
     Route: 048
  3. AFINITOR [Suspect]
     Active Substance: EVEROLIMUS
     Dosage: 5 MG, QD, ORAL VIA MOUTH
     Route: 048
  4. AFINITOR [Suspect]
     Active Substance: EVEROLIMUS
     Dosage: 5 MG (30 TABLETS OF 5 MG)
     Route: 048
  5. EXEMESTANE [Concomitant]
     Active Substance: EXEMESTANE
     Indication: Breast cancer
     Dosage: 25 MG, QD
     Route: 048
     Dates: start: 20210131

REACTIONS (13)
  - General physical health deterioration [Unknown]
  - Metastases to spine [Unknown]
  - Tumour marker increased [Unknown]
  - Tumour marker decreased [Unknown]
  - Thyroid disorder [Unknown]
  - Immune system disorder [Unknown]
  - Gingival pain [Unknown]
  - Haemoglobin decreased [Unknown]
  - Rash [Unknown]
  - Peripheral swelling [Unknown]
  - Pruritus [Unknown]
  - Dry skin [Unknown]
  - Wrong technique in product usage process [Unknown]

NARRATIVE: CASE EVENT DATE: 20210309
